FAERS Safety Report 7974232-X (Version None)
Quarter: 2011Q4

REPORT INFORMATION
  Report Type: 
  Country: None (occurrence: None)
  Receive Date: 20111213
  Receipt Date: 20111202
  Transmission Date: 20120403
  Serious: Yes (Hospitalization)
  Sender: FDA-Public Use
  Company Number: JP-MERCK-1112USA00855

PATIENT
  Age: 80 Year
  Sex: Female

DRUGS (7)
  1. SYNVISC [Suspect]
     Indication: OSTEOARTHRITIS
     Dosage: INTRA-ARTICULAR ROUTE
     Route: 065
     Dates: start: 20110929, end: 20111013
  2. FOSAMAX [Suspect]
     Indication: OSTEOPOROSIS
     Route: 048
  3. ONEALFA [Concomitant]
     Indication: OSTEOPOROSIS
     Route: 065
  4. MUCOSTA [Concomitant]
     Dosage: LEFT DISTAL RADIUS
     Route: 048
  5. DIOVAN [Concomitant]
     Indication: HYPERTENSION
     Route: 048
  6. LOXONIN [Concomitant]
     Route: 048
  7. ASPIRIN [Concomitant]
     Route: 048

REACTIONS (1)
  - ARTHRITIS [None]
